FAERS Safety Report 9986041 (Version 1)
Quarter: 2014Q1

REPORT INFORMATION
  Report Type: Report from Study
  Country: US (occurrence: US)
  Receive Date: 20140307
  Receipt Date: 20140307
  Transmission Date: 20141002
  Serious: No
  Sender: FDA-Public Use
  Company Number: US-ABBVIE-13P-163-1089427-00

PATIENT
  Age: 23 Year
  Sex: Male

DRUGS (8)
  1. HUMIRA [Suspect]
     Indication: CROHN^S DISEASE
     Dates: start: 20120913
  2. ABILIFY [Concomitant]
     Indication: DEPRESSION
  3. PAXIL [Concomitant]
     Indication: OBSESSIVE-COMPULSIVE DISORDER
  4. PAXIL [Concomitant]
     Indication: DEPRESSION
  5. COGENTIN [Concomitant]
     Indication: TREMOR
     Dosage: 0.5 MG
  6. ZOFRAN [Concomitant]
     Indication: ABDOMINAL DISCOMFORT
  7. PHENERGAN [Concomitant]
     Indication: NAUSEA
  8. KLONOPIN [Concomitant]
     Indication: ANXIETY

REACTIONS (4)
  - Arthralgia [Not Recovered/Not Resolved]
  - Bronchitis [Not Recovered/Not Resolved]
  - Pain in extremity [Not Recovered/Not Resolved]
  - Erythema [Not Recovered/Not Resolved]
